FAERS Safety Report 11391763 (Version 2)
Quarter: 2015Q3

REPORT INFORMATION
  Report Type: Spontaneous
  Country: US (occurrence: US)
  Receive Date: 20150818
  Receipt Date: 20150903
  Transmission Date: 20151125
  Serious: No
  Sender: FDA-Public Use
  Company Number: US-PFIZER INC-2015272161

PATIENT
  Age: 34 Year
  Sex: Male

DRUGS (4)
  1. METHADONE [Concomitant]
     Active Substance: METHADONE HYDROCHLORIDE
     Indication: PAIN IN EXTREMITY
     Dosage: 20 MG, UNK
     Dates: start: 2007, end: 2012
  2. NEURONTIN [Suspect]
     Active Substance: GABAPENTIN
     Dosage: 1200 MG TO 1800MG, 1X/DAY
     Route: 048
     Dates: end: 2012
  3. TRANXENE T-TAB [Concomitant]
     Active Substance: CLORAZEPATE DIPOTASSIUM
     Indication: ANXIETY
     Dosage: 7.5 MG, 2X/DAY
     Route: 048
     Dates: start: 2010
  4. OXYCODONE [Concomitant]
     Active Substance: OXYCODONE
     Dosage: UNK
     Dates: end: 2012

REACTIONS (1)
  - Drug effect incomplete [Unknown]
